FAERS Safety Report 25850480 (Version 2)
Quarter: 2025Q4

REPORT INFORMATION
  Report Type: Spontaneous
  Country: US (occurrence: US)
  Receive Date: 20250926
  Receipt Date: 20251003
  Transmission Date: 20260118
  Serious: No
  Sender: Haleon PLC
  Company Number: US-HALEON-2264930

PATIENT
  Sex: Male

DRUGS (1)
  1. ADVIL SINUS CONGESTION AND PAIN RELIEF [Suspect]
     Active Substance: IBUPROFEN\PHENYLEPHRINE HYDROCHLORIDE
     Indication: Headache
     Dosage: 1 - CAPLETS (CPL)

REACTIONS (1)
  - Somnolence [Unknown]
